FAERS Safety Report 8351524-6 (Version None)
Quarter: 2012Q2

REPORT INFORMATION
  Report Type: 
  Country: None (occurrence: None)
  Receive Date: 20120511
  Receipt Date: 20120509
  Transmission Date: 20120825
  Serious: Yes (Hospitalization, Other)
  Sender: FDA-Public Use
  Company Number: RO-BRISTOL-MYERS SQUIBB COMPANY-16516338

PATIENT
  Age: 47 Year
  Sex: Male

DRUGS (1)
  1. ABILIFY [Suspect]
     Indication: SCHIZOPHRENIA
     Dosage: FOR 4 YEARS; DRUG INTERRUPTED IN 2012
     Route: 048
     Dates: start: 20070101

REACTIONS (2)
  - ACUTE PULMONARY OEDEMA [None]
  - ELECTROCARDIOGRAM QT PROLONGED [None]
